FAERS Safety Report 8194597-6 (Version None)
Quarter: 2012Q1

REPORT INFORMATION
  Report Type: 
  Country: None (occurrence: None)
  Receive Date: 20120308
  Receipt Date: 20110916
  Transmission Date: 20120608
  Serious: No
  Sender: FDA-Public Use
  Company Number: US-GLAXOSMITHKLINE-A0944961A

PATIENT
  Age: 54 Year
  Sex: Female

DRUGS (1)
  1. NICORETTE (MINT) [Suspect]
     Indication: PRODUCT USED FOR UNKNOWN INDICATION
     Dates: start: 20110916, end: 20110916

REACTIONS (6)
  - FEELING DRUNK [None]
  - FATIGUE [None]
  - EXPIRED DRUG ADMINISTERED [None]
  - MALAISE [None]
  - NAUSEA [None]
  - EUPHORIC MOOD [None]
